FAERS Safety Report 15267381 (Version 1)
Quarter: 2018Q3

REPORT INFORMATION
  Report Type: Spontaneous
  Country: US (occurrence: US)
  Receive Date: 20180724
  Receipt Date: 20180724
  Transmission Date: 20181010
  Serious: No
  Sender: FDA-Public Use
  Company Number: None

PATIENT

DRUGS (2)
  1. ABILIFY [Suspect]
     Active Substance: ARIPIPRAZOLE
  2. RISPERDAL [Suspect]
     Active Substance: RISPERIDONE

REACTIONS (3)
  - Depression [None]
  - Paranoia [None]
  - Product substitution issue [None]
